FAERS Safety Report 13214949 (Version 1)
Quarter: 2017Q1

REPORT INFORMATION
  Report Type: Spontaneous
  Country: US (occurrence: US)
  Receive Date: 20170209
  Receipt Date: 20170209
  Transmission Date: 20170428
  Serious: No
  Sender: FDA-Public Use
  Company Number: US-ALLERGAN-1680673US

PATIENT
  Sex: Female
  Weight: 49.89 kg

DRUGS (1)
  1. BOTOX COSMETIC [Suspect]
     Active Substance: ONABOTULINUMTOXINA
     Indication: SKIN WRINKLING
     Dosage: UNK, SINGLE
     Route: 030
     Dates: start: 20160421, end: 20160421

REACTIONS (3)
  - Drug ineffective [Unknown]
  - Off label use [Unknown]
  - Injection site erythema [Not Recovered/Not Resolved]
